FAERS Safety Report 4778873-2 (Version None)
Quarter: 2005Q3

REPORT INFORMATION
  Report Type: 
  Country: None (occurrence: None)
  Receive Date: 20050926
  Receipt Date: 20050830
  Transmission Date: 20060218
  Serious: Yes (Death, Life-Threatening)
  Sender: FDA-Public Use
  Company Number: ZA-NOVOPROD-246696

PATIENT
  Age: 58 Year
  Sex: Male
  Weight: 66 kg

DRUGS (5)
  1. NOVOMIX 30 [Suspect]
     Indication: INSULIN-REQUIRING TYPE II DIABETES MELLITUS
     Dosage: 20 IU, QD
     Route: 058
     Dates: start: 19990901
  2. WARFARIN SODIUM [Concomitant]
     Dosage: 5 MG, UNK
     Route: 048
  3. METFORMIN [Concomitant]
     Dosage: 500 MG, UNK
  4. CARVEDILOL [Concomitant]
     Dosage: 25 MG, UNK
     Route: 048
  5. PERINDOPRIL [Concomitant]
     Dosage: 2 MG, UNK
     Route: 048

REACTIONS (1)
  - SUDDEN DEATH [None]
